FAERS Safety Report 8647409 (Version 2)
Quarter: 2013Q1

REPORT INFORMATION
  Report Type: Spontaneous
  Country: US (occurrence: US)
  Receive Date: 20120703
  Receipt Date: 20130121
  Transmission Date: 20140127
  Serious: Yes (Death, Other)
  Sender: FDA-Public Use
  Company Number: US-ELI_LILLY_AND_COMPANY-US201008006605

PATIENT
  Age: 73 Year
  Sex: Female

DRUGS (5)
  1. FORTEO [Suspect]
     Indication: OSTEOPOROSIS
     Dosage: 20 UG, QD
     Route: 058
     Dates: start: 201007
  2. FORTEO [Suspect]
     Dosage: 20 UG, QD
     Route: 058
  3. FORTEO [Suspect]
     Dosage: 20 UG, QD
     Route: 058
  4. FORTEO [Suspect]
     Dosage: 20 UG, QD
     Route: 058
  5. FORTEO [Suspect]
     Dosage: 20 UG, QD
     Route: 058

REACTIONS (14)
  - Pulmonary embolism [Fatal]
  - Bronchial disorder [Unknown]
  - Blister [Unknown]
  - Acne [Unknown]
  - Fall [Recovered/Resolved]
  - Hair growth abnormal [Unknown]
  - Nail growth abnormal [Unknown]
  - Limb injury [Unknown]
  - Bone disorder [Unknown]
  - Influenza [Unknown]
  - Pain [Unknown]
  - Mass [Unknown]
  - Accidental overdose [Recovered/Resolved]
  - Injection site bruising [Not Recovered/Not Resolved]
